FAERS Safety Report 18088517 (Version 3)
Quarter: 2021Q2

REPORT INFORMATION
  Report Type: Spontaneous
  Country: CA (occurrence: CA)
  Receive Date: 20200729
  Receipt Date: 20210518
  Transmission Date: 20210717
  Serious: Yes (Hospitalization, Other)
  Sender: FDA-Public Use
  Company Number: CA-VALIDUS PHARMACEUTICALS LLC-CA-2020VAL000640

PATIENT

DRUGS (12)
  1. CEFOTAXIME SODIUM [Suspect]
     Active Substance: CEFOTAXIME SODIUM
     Indication: PLEOCYTOSIS
  2. RIFAMPICIN [Suspect]
     Active Substance: RIFAMPIN
     Indication: PLEOCYTOSIS
  3. VANCOMYCIN [Suspect]
     Active Substance: VANCOMYCIN
     Indication: EVIDENCE BASED TREATMENT
     Dosage: UNK
     Route: 065
  4. VANCOMYCIN [Suspect]
     Active Substance: VANCOMYCIN
     Indication: PLEOCYTOSIS
  5. RIFAMPICIN [Suspect]
     Active Substance: RIFAMPIN
     Indication: EVIDENCE BASED TREATMENT
     Dosage: UNK
     Route: 065
  6. VANCOMYCIN [Suspect]
     Active Substance: VANCOMYCIN
     Indication: BACTERIAL SEPSIS
     Dosage: COMPLETED COURSE OF VANCOMYCIN
     Route: 065
  7. CEFOTAXIME SODIUM [Suspect]
     Active Substance: CEFOTAXIME SODIUM
     Indication: EVIDENCE BASED TREATMENT
     Dosage: INJECTION
     Route: 065
  8. AMPICILLIN [Suspect]
     Active Substance: AMPICILLIN
     Indication: MENINGITIS HAEMOPHILUS
     Dosage: UNK
     Route: 065
  9. CEFOTAXIME SODIUM [Suspect]
     Active Substance: CEFOTAXIME SODIUM
     Indication: MENINGITIS
  10. RIFAMPICIN [Suspect]
     Active Substance: RIFAMPIN
     Indication: MENINGITIS
  11. VANCOMYCIN [Suspect]
     Active Substance: VANCOMYCIN
     Indication: BACILLUS INFECTION
  12. VANCOMYCIN [Suspect]
     Active Substance: VANCOMYCIN
     Indication: MENINGITIS

REACTIONS (1)
  - Candida infection [Recovered/Resolved]
